APPROVED DRUG PRODUCT: VYKAT XR
Active Ingredient: DIAZOXIDE CHOLINE
Strength: 75MG
Dosage Form/Route: TABLET, EXTENDED RELEASE;ORAL
Application: N216665 | Product #002
Applicant: SOLENO THERAPEUTICS INC
Approved: Mar 26, 2025 | RLD: Yes | RS: No | Type: RX

PATENTS:
Patent 12343348 | Expires: Nov 12, 2035
Patent 12178823 | Expires: Nov 12, 2035
Patent 9757384 | Expires: Nov 12, 2035
Patent 12419895 | Expires: Nov 12, 2035
Patent 7572789 | Expires: Dec 20, 2026
Patent 7799777 | Expires: Mar 5, 2029

EXCLUSIVITY:
Code: NP | Date: Mar 26, 2028